FAERS Safety Report 18359411 (Version 1)
Quarter: 2020Q4

REPORT INFORMATION
  Report Type: Spontaneous
  Country: US (occurrence: US)
  Receive Date: 20201008
  Receipt Date: 20201008
  Transmission Date: 20210114
  Serious: No
  Sender: FDA-Public Use
  Company Number: None

PATIENT
  Sex: Female
  Weight: 74.25 kg

DRUGS (16)
  1. PRAVASTATIN. [Concomitant]
     Active Substance: PRAVASTATIN
  2. VENLAFAXINE [Concomitant]
     Active Substance: VENLAFAXINE HYDROCHLORIDE
  3. ADULT MULTIVITAMIN [Concomitant]
  4. VITAMIN C GUMMIES [Concomitant]
  5. ROCKLATAN [Suspect]
     Active Substance: LATANOPROST\NETARSUDIL MESYLATE
     Indication: GLAUCOMA
     Dosage: ?          QUANTITY:1 DROP(S);?
     Dates: start: 20191118, end: 20201008
  6. LEVOTHYROXINE. [Concomitant]
     Active Substance: LEVOTHYROXINE
  7. CLOPIDOGREL [Concomitant]
     Active Substance: CLOPIDOGREL BISULFATE
  8. ASPIRIN 81 MG [Concomitant]
     Active Substance: ASPIRIN
  9. CLONAZEPAM. [Concomitant]
     Active Substance: CLONAZEPAM
  10. SYSTANE (HYPROMELLOSE 2910 (4000 MPA.S)) [Concomitant]
     Active Substance: HYPROMELLOSE 2910 (4000 MPA.S)
  11. BRIMONIDINE [Concomitant]
     Active Substance: BRIMONIDINE TARTRATE
  12. PANTOPRAZOLE [Concomitant]
     Active Substance: PANTOPRAZOLE
  13. CRANBERRY FRUIT VITAMIN [Concomitant]
  14. GLUCOSAMINE [Concomitant]
     Active Substance: GLUCOSAMINE
  15. TIMOLOL. [Concomitant]
     Active Substance: TIMOLOL
  16. PRAMIPEXOLE. [Concomitant]
     Active Substance: PRAMIPEXOLE

REACTIONS (2)
  - Pruritus [None]
  - Skin depigmentation [None]
